FAERS Safety Report 8529370-X (Version None)
Quarter: 2012Q3

REPORT INFORMATION
  Report Type: 
  Country: None (occurrence: None)
  Receive Date: 20120723
  Receipt Date: 20120709
  Transmission Date: 20120928
  Serious: Yes (Life-Threatening, Hospitalization)
  Sender: FDA-Public Use
  Company Number: SA-JNJFOC-20120608005

PATIENT
  Sex: Male
  Weight: 78 kg

DRUGS (2)
  1. ZYTIGA [Suspect]
     Indication: PROSTATE CANCER METASTATIC
     Route: 048
     Dates: start: 20120430, end: 20120520
  2. DIGOXIN [Concomitant]
     Indication: ATRIAL FIBRILLATION
     Route: 065

REACTIONS (4)
  - HYPONATRAEMIA [None]
  - PULMONARY CONGESTION [None]
  - ASTHENIA [None]
  - GENERALISED OEDEMA [None]
